FAERS Safety Report 18051007 (Version 1)
Quarter: 2020Q3

REPORT INFORMATION
  Report Type: Spontaneous
  Country: GB (occurrence: GB)
  Receive Date: 20200721
  Receipt Date: 20200721
  Transmission Date: 20201103
  Serious: Yes (Other)
  Sender: FDA-Public Use
  Company Number: GB-JNJFOC-20200322484

PATIENT
  Sex: Male

DRUGS (1)
  1. SIMPONI [Suspect]
     Active Substance: GOLIMUMAB
     Indication: ANKYLOSING SPONDYLITIS
     Route: 058

REACTIONS (5)
  - Product dose omission issue [Unknown]
  - Product use issue [Unknown]
  - Dementia Alzheimer^s type [Unknown]
  - Malaise [Not Recovered/Not Resolved]
  - Off label use [Unknown]
